FAERS Safety Report 6930103-9 (Version None)
Quarter: 2010Q3

REPORT INFORMATION
  Report Type: 
  Country: None (occurrence: None)
  Receive Date: 20100818
  Receipt Date: 20090910
  Transmission Date: 20110219
  Serious: No
  Sender: FDA-Public Use
  Company Number: US-ASTRAZENECA-2009SE12403

PATIENT
  Sex: Male
  Weight: 79.4 kg

DRUGS (14)
  1. IRESSA [Suspect]
     Route: 048
  2. GABAPENTIN [Concomitant]
  3. ZETIA [Concomitant]
  4. GEMFIBROZOLE [Concomitant]
  5. METOPROLOL SUCCINATE [Concomitant]
  6. SYNTHROID [Concomitant]
  7. OMNEPROZOLE [Concomitant]
  8. ZOTREL [Concomitant]
  9. FERRUS SULFATE [Concomitant]
  10. FEROSAMIDE [Concomitant]
  11. GLYPESIDE [Concomitant]
  12. VITAMIN B-12 [Concomitant]
  13. SENIOR VITAMINS [Concomitant]
  14. DIGOXIN [Concomitant]

REACTIONS (3)
  - DRY SKIN [None]
  - RASH [None]
  - RHINORRHOEA [None]
